FAERS Safety Report 7031640-1 (Version None)
Quarter: 2010Q4

REPORT INFORMATION
  Report Type: 
  Country: None (occurrence: None)
  Receive Date: 20101006
  Receipt Date: 20101006
  Transmission Date: 20110411
  Serious: Yes (Other)
  Sender: FDA-Public Use
  Company Number: None

PATIENT

DRUGS (1)
  1. SEROQUEL XR [Suspect]
     Dates: end: 20100415

REACTIONS (7)
  - HALLUCINATIONS, MIXED [None]
  - HYPOAESTHESIA [None]
  - INSOMNIA [None]
  - MEMORY IMPAIRMENT [None]
  - PRODUCT QUALITY ISSUE [None]
  - TARDIVE DYSKINESIA [None]
  - TREMOR [None]
